FAERS Safety Report 5033889-6 (Version None)
Quarter: 2006Q2

REPORT INFORMATION
  Report Type: 
  Country: None (occurrence: None)
  Receive Date: 20060623
  Receipt Date: 20060612
  Transmission Date: 20061013
  Serious: Yes (Life-Threatening, Other)
  Sender: FDA-Public Use
  Company Number: PHBS2006NL08646

PATIENT
  Age: 65 Year
  Sex: Male
  Weight: 73 kg

DRUGS (2)
  1. ASCAL CARDIO [Concomitant]
     Dosage: 100 MG/DAY
     Dates: start: 19950101
  2. DIOVAN [Suspect]
     Indication: HYPERTENSION
     Dosage: 40 MG/DAY
     Route: 048
     Dates: start: 20030101, end: 20060522

REACTIONS (12)
  - CARDIAC FAILURE CONGESTIVE [None]
  - CONJUNCTIVITIS [None]
  - COUGH [None]
  - DEPRESSED MOOD [None]
  - DYSPNOEA [None]
  - FATIGUE [None]
  - FLUID RETENTION [None]
  - HYPERHIDROSIS [None]
  - MYALGIA [None]
  - PALPITATIONS [None]
  - PYREXIA [None]
  - RHINITIS [None]
